FAERS Safety Report 4343518-2 (Version None)
Quarter: 2004Q2

REPORT INFORMATION
  Report Type: 
  Country: None (occurrence: None)
  Receive Date: 20040422
  Receipt Date: 20040414
  Transmission Date: 20050107
  Serious: Yes (Other)
  Sender: FDA-Public Use
  Company Number: PHBS2004FI05036

PATIENT
  Age: 66 Year
  Sex: Female

DRUGS (6)
  1. LESCOL [Suspect]
     Indication: HYPERCHOLESTEROLAEMIA
     Dosage: 80 MG/DAY
     Route: 048
     Dates: start: 20031209, end: 20040130
  2. LESCOL [Suspect]
     Dates: start: 20000101
  3. ADURSAL [Concomitant]
     Dosage: 150 MG, 6QD
     Route: 048
  4. PREDNISONE [Concomitant]
     Dosage: 5 MG/DAY
     Route: 048
  5. THYROXIN [Concomitant]
     Indication: HYPOTHYROIDISM
     Dosage: 0.1 MG/DAY
     Route: 048
  6. RENITEC COMP. [Concomitant]
     Dosage: 1.5 TABLETS/DAY
     Route: 048

REACTIONS (7)
  - ALANINE AMINOTRANSFERASE INCREASED [None]
  - ASPARTATE AMINOTRANSFERASE INCREASED [None]
  - BLOOD ALKALINE PHOSPHATASE INCREASED [None]
  - CHOLANGITIS CHRONIC [None]
  - GAMMA-GLUTAMYLTRANSFERASE INCREASED [None]
  - HEPATIC ENZYME INCREASED [None]
  - IMMUNOGLOBULINS INCREASED [None]
